FAERS Safety Report 8181964-X (Version None)
Quarter: 2012Q1

REPORT INFORMATION
  Report Type: 
  Country: None (occurrence: None)
  Receive Date: 20120302
  Receipt Date: 20120224
  Transmission Date: 20120608
  Serious: Yes (Hospitalization)
  Sender: FDA-Public Use
  Company Number: MX-B.I. PHARMACEUTICALS,INC./RIDGEFIELD-2012-MX-00081MX

PATIENT
  Sex: Female

DRUGS (1)
  1. TRADJENTA [Suspect]

REACTIONS (2)
  - VOMITING [None]
  - NAUSEA [None]
